FAERS Safety Report 6445948-1 (Version None)
Quarter: 2009Q4

REPORT INFORMATION
  Report Type: 
  Country: None (occurrence: None)
  Receive Date: 20091119
  Receipt Date: 20091006
  Transmission Date: 20100525
  Serious: No
  Sender: FDA-Public Use
  Company Number: A0770201A

PATIENT
  Age: 33 Year
  Sex: Female
  Weight: 84.5 kg

DRUGS (2)
  1. WELLBUTRIN SR [Suspect]
     Indication: DEPRESSION
     Dosage: 180MG TWICE PER DAY
     Route: 048
  2. VITAMIN TAB [Concomitant]
     Dosage: 1TAB PER DAY
     Dates: start: 20080801

REACTIONS (2)
  - DRUG EXPOSURE DURING PREGNANCY [None]
  - LIVE BIRTH [None]
